FAERS Safety Report 10429350 (Version 1)
Quarter: 2014Q3

REPORT INFORMATION
  Report Type: Spontaneous
  Country: US (occurrence: None)
  Receive Date: 20140725
  Receipt Date: 20140725
  Transmission Date: 20150326
  Serious: Yes (Other)
  Sender: FDA-Public Use
  Company Number: 163-50794-13124304

PATIENT
  Age: 76 Year
  Sex: Female
  Weight: 44.91 kg

DRUGS (7)
  1. EXJADE [Suspect]
     Active Substance: DEFERASIROX
     Indication: PRODUCT USED FOR UNKNOWN INDICATION
  2. PREMARIN (ESTROGENS CONJUCATED) [Concomitant]
  3. MULTIVITAMINS [Concomitant]
     Active Substance: VITAMINS
  4. VIDAZA [Suspect]
     Active Substance: AZACITIDINE
     Indication: MYELODYSPLASTIC SYNDROME
     Route: 058
     Dates: start: 2013, end: 2013
  5. SYNTHROID [Concomitant]
     Active Substance: LEVOTHYROXINE SODIUM
  6. CALCIUM [Concomitant]
     Active Substance: CALCIUM
  7. BLOOD (BLOOD AND RELATED PRODUCTS) [Concomitant]
     Active Substance: WHOLE BLOOD

REACTIONS (6)
  - Unevaluable event [None]
  - Platelet count decreased [None]
  - Haemoglobin decreased [None]
  - Neutrophil count decreased [None]
  - White blood cell count decreased [None]
  - Iron overload [None]

NARRATIVE: CASE EVENT DATE: 2013
